FAERS Safety Report 19849893 (Version 1)
Quarter: 2021Q3

REPORT INFORMATION
  Report Type: Spontaneous
  Country: TR (occurrence: TR)
  Receive Date: 20210917
  Receipt Date: 20210917
  Transmission Date: 20211014
  Serious: Yes (Other)
  Sender: FDA-Public Use
  Company Number: TR-ALLERGAN-2132198US

PATIENT
  Sex: Female

DRUGS (1)
  1. FLUOXETINE HCL UNK [Suspect]
     Active Substance: FLUOXETINE HYDROCHLORIDE
     Indication: ANXIETY

REACTIONS (2)
  - Off label use [Unknown]
  - Narcolepsy [Recovered/Resolved]
